FAERS Safety Report 5345508-X (Version None)
Quarter: 2007Q2

REPORT INFORMATION
  Report Type: 
  Country: None (occurrence: None)
  Receive Date: 20070601
  Receipt Date: 20070601
  Transmission Date: 20071010
  Serious: No
  Sender: FDA-Public Use
  Company Number: None

PATIENT
  Sex: Male

DRUGS (7)
  1. REVLIMID [Suspect]
     Indication: MYELODYSPLASTIC SYNDROME
     Dosage: 10 MG DAILY ORALLY
     Route: 048
     Dates: start: 20070313, end: 20070523
  2. NIFEDIPINE [Concomitant]
  3. ONDANSETRON [Concomitant]
  4. LISINOPRIL [Concomitant]
  5. TERAZOSIN HCL [Concomitant]
  6. LEVITRA [Concomitant]
  7. NABUMETONE [Concomitant]

REACTIONS (1)
  - NO THERAPEUTIC RESPONSE [None]
